FAERS Safety Report 15937407 (Version 1)
Quarter: 2019Q1

REPORT INFORMATION
  Report Type: Spontaneous
  Country: ES (occurrence: ES)
  Receive Date: 20190208
  Receipt Date: 20190208
  Transmission Date: 20190417
  Serious: Yes (Hospitalization)
  Sender: FDA-Public Use
  Company Number: ES-ASTRAZENECA-2019SE20121

PATIENT
  Age: 86 Year
  Sex: Female

DRUGS (5)
  1. DIAZEPAM. [Concomitant]
     Active Substance: DIAZEPAM
     Indication: SCIATICA
     Dosage: 5 MG, 1X / DAY
  2. DEXKETOPROFEN [Concomitant]
     Active Substance: DEXKETOPROFEN
     Indication: SCIATICA
     Dosage: 25 MG EVERY 8 HOURS
  3. PARACETAMOL, TRAMADOL [Concomitant]
     Active Substance: ACETAMINOPHEN\TRAMADOL
     Indication: SCIATICA
     Dosage: 325/37.5 MG EVERY 8 HOURS
  4. METAMIZOLE [Concomitant]
     Active Substance: METAMIZOLE
     Indication: SCIATICA
     Dosage: 575 MG EVERY 8 HOURS
  5. OMEPRAZOLE. [Suspect]
     Active Substance: OMEPRAZOLE
     Indication: PRODUCT USED FOR UNKNOWN INDICATION
     Dosage: 20 MG, 1X / DAY
     Route: 065

REACTIONS (7)
  - Hyperoxia [Recovering/Resolving]
  - Oedema peripheral [Recovering/Resolving]
  - Cholestasis [Recovered/Resolved]
  - General physical health deterioration [Recovering/Resolving]
  - Product use issue [Unknown]
  - Pain in extremity [Recovering/Resolving]
  - Nausea [Recovering/Resolving]
